FAERS Safety Report 5310063-7 (Version None)
Quarter: 2007Q2

REPORT INFORMATION
  Report Type: 
  Country: None (occurrence: None)
  Receive Date: 20070427
  Receipt Date: 20070419
  Transmission Date: 20071010
  Serious: Yes (Death)
  Sender: FDA-Public Use
  Company Number: FR-GLAXOSMITHKLINE-B0467072A

PATIENT
  Age: 69 Year
  Sex: Male

DRUGS (4)
  1. SERETIDE [Suspect]
     Indication: CHRONIC OBSTRUCTIVE PULMONARY DISEASE
     Dosage: 2PUFF PER DAY
     Route: 055
     Dates: start: 20060501, end: 20070330
  2. DIANTALVIC [Suspect]
     Indication: BACK PAIN
     Dosage: 6CAP PER DAY
     Route: 048
     Dates: start: 20061201, end: 20070330
  3. LYRICA [Suspect]
     Indication: CARPAL TUNNEL SYNDROME
     Dosage: 50MG PER DAY
     Route: 048
     Dates: start: 20070322, end: 20070330
  4. CITALOPRAM [Suspect]
     Indication: DEPRESSION
     Dosage: 20MG PER DAY
     Route: 048
     Dates: start: 20061001, end: 20070330

REACTIONS (4)
  - ARRHYTHMIA [None]
  - FALL [None]
  - MYOCARDIAL INFARCTION [None]
  - SUDDEN DEATH [None]
